FAERS Safety Report 9121884 (Version 1)
Quarter: 2013Q1

REPORT INFORMATION
  Report Type: Spontaneous
  Country: IT (occurrence: IT)
  Receive Date: 20130227
  Receipt Date: 20130227
  Transmission Date: 20140127
  Serious: Yes (Hospitalization)
  Sender: FDA-Public Use
  Company Number: IT-ABBOTT-13X-083-1055019-00

PATIENT
  Age: 49 Year
  Sex: Male

DRUGS (3)
  1. DEPAKIN CHRONO [Suspect]
     Indication: INTENTIONAL SELF-INJURY
     Dosage: 500 MG DAILY
     Route: 048
     Dates: start: 20130206, end: 20130206
  2. OLANZAPINE [Suspect]
     Indication: INTENTIONAL SELF-INJURY
     Dosage: 2.5 MG DAILY
     Route: 048
     Dates: start: 20130206, end: 20130206
  3. LORAZEPAM [Suspect]
     Indication: INTENTIONAL SELF-INJURY
     Dosage: 2.5 MG DAILY
     Route: 048
     Dates: start: 20130206, end: 20130206

REACTIONS (4)
  - Cardiac enzymes increased [Unknown]
  - Arrhythmia [Unknown]
  - Toxicity to various agents [Unknown]
  - Sopor [Unknown]
